FAERS Safety Report 7066580-5 (Version None)
Quarter: 2010Q4

REPORT INFORMATION
  Report Type: 
  Country: None (occurrence: None)
  Receive Date: 20101027
  Receipt Date: 20100610
  Transmission Date: 20110411
  Serious: No
  Sender: FDA-Public Use
  Company Number: US-WYE-H15644310

PATIENT
  Sex: Female
  Weight: 79 kg

DRUGS (2)
  1. PREMPRO [Suspect]
     Indication: MENOPAUSE
     Dosage: UNKNOWN
     Route: 048
     Dates: start: 20091101
  2. PREMPRO [Suspect]
     Dosage: UNKNOWN
     Route: 048
     Dates: start: 20100501

REACTIONS (3)
  - DEPRESSION [None]
  - INCORRECT DOSE ADMINISTERED [None]
  - PRODUCT PACKAGING ISSUE [None]
